FAERS Safety Report 13971325 (Version 1)
Quarter: 2017Q3

REPORT INFORMATION
  Report Type: Spontaneous
  Country: US (occurrence: US)
  Receive Date: 20170914
  Receipt Date: 20170914
  Transmission Date: 20171128
  Serious: No
  Sender: FDA-Public Use
  Company Number: US-ASTELLAS-2017US015025

PATIENT
  Sex: Male

DRUGS (2)
  1. XTANDI [Suspect]
     Active Substance: ENZALUTAMIDE
     Indication: PROSTATE CANCER
     Route: 048
     Dates: start: 20170315
  2. MEGESTROL [Suspect]
     Active Substance: MEGESTROL
     Indication: HOT FLUSH
     Route: 065

REACTIONS (2)
  - Blood count abnormal [Unknown]
  - Dyspnoea [Recovered/Resolved]
